FAERS Safety Report 9377141 (Version 1)
Quarter: 2013Q3

REPORT INFORMATION
  Report Type: Report from Study
  Country: JP (occurrence: JP)
  Receive Date: 20130701
  Receipt Date: 20130701
  Transmission Date: 20140515
  Serious: Yes (Disabling)
  Sender: FDA-Public Use
  Company Number: JP-SANOFI-AVENTIS-2013SA055684

PATIENT
  Age: 63 Year
  Sex: Male
  Weight: 57 kg

DRUGS (12)
  1. PLAVIX [Suspect]
     Indication: ANGINA PECTORIS
     Route: 048
     Dates: start: 20130202, end: 20130202
  2. PLAVIX [Suspect]
     Indication: ANGINA PECTORIS
     Route: 048
     Dates: start: 20130203
  3. ASPIRIN [Concomitant]
     Indication: ANGINA PECTORIS
     Route: 048
     Dates: start: 20120202
  4. HEPARIN [Concomitant]
     Indication: ANGINA PECTORIS
     Dosage: DOSE:15000 UNIT(S)
     Route: 042
     Dates: start: 20120202, end: 20120203
  5. HEPARIN [Concomitant]
     Indication: ANGINA PECTORIS
     Dosage: DOSE:7500 UNIT(S)
     Route: 042
     Dates: start: 20120202, end: 20120202
  6. MAINTATE [Concomitant]
     Indication: ANGINA PECTORIS
     Route: 048
     Dates: start: 20120202
  7. THEODUR [Concomitant]
     Indication: PROPHYLAXIS
     Route: 048
  8. CRESTOR [Concomitant]
     Route: 048
  9. NIKORANMART [Concomitant]
     Indication: PROPHYLAXIS
     Route: 048
  10. OLMETEC [Concomitant]
     Route: 048
  11. TRICHLORMETHIAZIDE [Concomitant]
     Route: 048
  12. ISOSORBIDE MONONITRATE [Concomitant]
     Route: 048

REACTIONS (1)
  - Coronary artery bypass [Recovering/Resolving]
